FAERS Safety Report 6441882-1 (Version None)
Quarter: 2009Q4

REPORT INFORMATION
  Report Type: 
  Country: None (occurrence: None)
  Receive Date: 20091113
  Receipt Date: 20091113
  Transmission Date: 20100525
  Serious: Yes (Hospitalization)
  Sender: FDA-Public Use
  Company Number: None

PATIENT
  Age: 37 Year
  Sex: Male
  Weight: 82.55 kg

DRUGS (1)
  1. DOXYCYCLINE [Suspect]
     Indication: ORAL INFECTION
     Dosage: 100 MG BID PO
     Route: 048
     Dates: start: 20090616, end: 20090622

REACTIONS (1)
  - DRUG HYPERSENSITIVITY [None]
